FAERS Safety Report 5505117-6 (Version None)
Quarter: 2007Q4

REPORT INFORMATION
  Report Type: 
  Country: None (occurrence: None)
  Receive Date: 20071102
  Receipt Date: 20071023
  Transmission Date: 20080405
  Serious: Yes (Hospitalization, Other)
  Sender: FDA-Public Use
  Company Number: US-JNJFOC-20071005947

PATIENT
  Sex: Male
  Weight: 99.79 kg

DRUGS (5)
  1. REMICADE [Suspect]
     Route: 042
  2. REMICADE [Suspect]
     Indication: CROHN'S DISEASE
     Route: 042
  3. 6MP [Concomitant]
  4. LIPITOR [Concomitant]
  5. TOPROL-XL [Concomitant]
     Indication: BLOOD PRESSURE

REACTIONS (6)
  - ARTHRALGIA [None]
  - CHEST PAIN [None]
  - HIATUS HERNIA [None]
  - MYALGIA [None]
  - PYREXIA [None]
  - ROAD TRAFFIC ACCIDENT [None]
